FAERS Safety Report 18377635 (Version 1)
Quarter: 2020Q4

REPORT INFORMATION
  Report Type: Spontaneous
  Country: IN (occurrence: IN)
  Receive Date: 20201013
  Receipt Date: 20201013
  Transmission Date: 20210114
  Serious: Yes (Other)
  Sender: FDA-Public Use
  Company Number: IN-PFIZER INC-2020335933

PATIENT
  Age: 23 Year
  Sex: Female

DRUGS (3)
  1. CRIZALK [Suspect]
     Active Substance: CRIZOTINIB
     Indication: PULMONARY EMBOLISM
  2. CRIZALK [Suspect]
     Active Substance: CRIZOTINIB
     Indication: NON-SMALL CELL LUNG CANCER STAGE IV
     Dosage: UNK
     Dates: start: 201804
  3. CRIZALK [Suspect]
     Active Substance: CRIZOTINIB
     Indication: PLEURAL EFFUSION
     Dosage: 250 MG, 2X/DAY
     Route: 048

REACTIONS (11)
  - Neoplasm progression [Unknown]
  - Pericardial effusion [Unknown]
  - Blood albumin decreased [Unknown]
  - Deep vein thrombosis [Unknown]
  - Protein total decreased [Unknown]
  - White blood cell count decreased [Unknown]
  - Blood glucose increased [Unknown]
  - Blood creatinine increased [Unknown]
  - Blood sodium decreased [Unknown]
  - Blood calcium decreased [Unknown]
  - Procalcitonin increased [Unknown]

NARRATIVE: CASE EVENT DATE: 201806
